FAERS Safety Report 5689050-5 (Version None)
Quarter: 2008Q1

REPORT INFORMATION
  Report Type: 
  Country: None (occurrence: None)
  Receive Date: 20080331
  Receipt Date: 20080325
  Transmission Date: 20080703
  Serious: Yes (Life-Threatening, Hospitalization)
  Sender: FDA-Public Use
  Company Number: B0512580A

PATIENT
  Age: 82 Year
  Sex: Female
  Weight: 64 kg

DRUGS (5)
  1. ARIXTRA [Suspect]
     Indication: THROMBOSIS PROPHYLAXIS
     Dosage: 2.5MG PER DAY
     Route: 058
     Dates: start: 20080227, end: 20080302
  2. PEON [Concomitant]
     Indication: PAIN PROPHYLAXIS
     Route: 048
  3. EMPYNASE [Concomitant]
     Indication: PAIN PROPHYLAXIS
     Route: 048
  4. FLOMOX [Concomitant]
     Indication: INFECTION PROPHYLAXIS
     Dosage: 300MG PER DAY
     Route: 048
     Dates: start: 20080301, end: 20080306
  5. PENTCILLIN [Concomitant]
     Indication: INFECTION PROPHYLAXIS
     Dosage: 4G PER DAY
     Route: 042
     Dates: start: 20080227, end: 20080229

REACTIONS (3)
  - DEPRESSED LEVEL OF CONSCIOUSNESS [None]
  - POST PROCEDURAL HAEMORRHAGE [None]
  - SHOCK HAEMORRHAGIC [None]
